FAERS Safety Report 4784790-4 (Version None)
Quarter: 2005Q3

REPORT INFORMATION
  Report Type: 
  Country: None (occurrence: None)
  Receive Date: 20050930
  Receipt Date: 20050923
  Transmission Date: 20060218
  Serious: Yes (Other)
  Sender: FDA-Public Use
  Company Number: PHBS2005PT14141

PATIENT
  Age: 75 Year
  Sex: Female

DRUGS (4)
  1. ZOMETA [Suspect]
     Indication: MULTIPLE MYELOMA
     Dosage: 4 MG, QMO
     Route: 042
     Dates: start: 20030901, end: 20050801
  2. CYCLOPHOSPHAMIDE [Concomitant]
     Dates: start: 20030901
  3. DEXAMETHASONE [Concomitant]
     Dates: start: 20030901
  4. THALIDOMIDE [Concomitant]
     Dates: start: 20040801

REACTIONS (3)
  - ASEPTIC NECROSIS BONE [None]
  - JAW DISORDER [None]
  - SURGERY [None]
